FAERS Safety Report 8474920-5 (Version None)
Quarter: 2012Q2

REPORT INFORMATION
  Report Type: 
  Country: None (occurrence: None)
  Receive Date: 20120628
  Receipt Date: 20120618
  Transmission Date: 20120825
  Serious: Yes (Other)
  Sender: FDA-Public Use
  Company Number: US-JNJFOC-20120518442

PATIENT
  Sex: Female

DRUGS (23)
  1. TRICOR [Concomitant]
     Route: 048
  2. INDAPAMIDE [Concomitant]
     Route: 048
  3. NEXIUM [Concomitant]
     Route: 048
  4. CLONIDINE HCL [Concomitant]
     Route: 048
  5. FOLIC ACID [Concomitant]
     Route: 048
  6. POTASSIUM CHLORIDE [Concomitant]
     Route: 065
  7. GABAPENTIN [Concomitant]
     Dosage: 2 TABLETS
     Route: 065
  8. LOTENSIN [Concomitant]
     Route: 048
  9. VITAMINE E [Concomitant]
     Route: 048
  10. PROAIR HFA [Concomitant]
     Indication: CHEST DISCOMFORT
     Dosage: 2 PUFFS EVERY 4-6 HRS
     Route: 065
  11. AMLODIPINE BESYLATE [Concomitant]
     Route: 048
  12. PROAIR HFA [Concomitant]
     Indication: DYSPNOEA
     Dosage: 2 PUFFS EVERY 4-6 HRS
     Route: 065
  13. REMICADE [Suspect]
     Indication: PRODUCT USED FOR UNKNOWN INDICATION
     Route: 042
     Dates: start: 20120411, end: 20120411
  14. ASMANEX TWISTHALER [Concomitant]
     Route: 048
  15. PREDNISONE TAB [Concomitant]
     Route: 048
  16. MULTIPLE VITAMINS [Concomitant]
     Route: 048
  17. ACTONEL [Concomitant]
     Route: 048
  18. ARAVA [Concomitant]
     Route: 048
  19. HEMOCYTE [Concomitant]
     Dosage: T TSF
     Route: 065
  20. ULTRACET [Concomitant]
     Indication: PAIN
     Route: 065
  21. PROAIR HFA [Concomitant]
     Indication: WHEEZING
     Dosage: 2 PUFFS EVERY 4-6 HRS
     Route: 065
  22. LORTAB [Concomitant]
     Route: 048
  23. MOBIC [Concomitant]
     Route: 048

REACTIONS (7)
  - TOOTH REPAIR [None]
  - PRURITUS [None]
  - DIZZINESS [None]
  - FATIGUE [None]
  - GOITRE [None]
  - HYPOTHYROIDISM [None]
  - DYSPNOEA [None]
